FAERS Safety Report 14866139 (Version 1)
Quarter: 2018Q2

REPORT INFORMATION
  Report Type: Spontaneous
  Country: US (occurrence: US)
  Receive Date: 20180508
  Receipt Date: 20180508
  Transmission Date: 20180711
  Serious: No
  Sender: FDA-Public Use
  Company Number: US-ROCHE-1965505

PATIENT
  Sex: Female

DRUGS (15)
  1. ESBRIET [Suspect]
     Active Substance: PIRFENIDONE
     Indication: IDIOPATHIC PULMONARY FIBROSIS
     Dosage: 3 CAPSULES THREE TIMES A DAY
     Route: 048
     Dates: start: 201510
  2. FISH OIL [Concomitant]
     Active Substance: FISH OIL
     Route: 065
  3. LEVOTHYROXIN [Concomitant]
     Active Substance: LEVOTHYROXINE
     Route: 065
  4. VITAMIN C [Concomitant]
     Active Substance: ASCORBIC ACID
     Route: 065
  5. NYSTATIN. [Concomitant]
     Active Substance: NYSTATIN
     Dosage: 100000 UNIT/M
     Route: 065
  6. OMEPRAZOLE. [Concomitant]
     Active Substance: OMEPRAZOLE
     Route: 065
  7. VITAMIN B COMPLEX [Concomitant]
     Active Substance: CYANOCOBALAMIN\DEXPANTHENOL\NIACINAMIDE\PYRIDOXINE HYDROCHLORIDE\RIBOFLAVIN 5^-PHOSPHATE SODIUM\THIAMINE HYDROCHLORIDE\VITAMIN B COMPLEX
     Route: 065
  8. ATENOLOL. [Concomitant]
     Active Substance: ATENOLOL
     Route: 065
  9. BENZONATATE. [Concomitant]
     Active Substance: BENZONATATE
     Route: 065
  10. LOVASTATIN. [Concomitant]
     Active Substance: LOVASTATIN
     Route: 065
  11. GABAPENTIN. [Concomitant]
     Active Substance: GABAPENTIN
     Route: 065
  12. RANITIDINE HCL [Concomitant]
     Active Substance: RANITIDINE HYDROCHLORIDE
     Route: 065
  13. VITAMIN B12 [Concomitant]
     Active Substance: CYANOCOBALAMIN
     Route: 065
  14. COENZYME Q10 [Concomitant]
     Active Substance: UBIDECARENONE
     Route: 065
  15. AMITRIPTYLINE [Concomitant]
     Active Substance: AMITRIPTYLINE
     Route: 065

REACTIONS (1)
  - Nausea [Not Recovered/Not Resolved]
